FAERS Safety Report 9165965 (Version 1)
Quarter: 2013Q1

REPORT INFORMATION
  Report Type: Spontaneous
  Country: US (occurrence: US)
  Receive Date: 20130315
  Receipt Date: 20130315
  Transmission Date: 20140127
  Serious: Yes (Death, Other)
  Sender: FDA-Public Use
  Company Number: US-ROXANE LABORATORIES, INC.-2013-RO-00369RO

PATIENT
  Age: 34 Year
  Sex: Male

DRUGS (1)
  1. METHADONE [Suspect]

REACTIONS (3)
  - Toxicity to various agents [Fatal]
  - Arteriosclerosis [Fatal]
  - Drug diversion [Unknown]
